FAERS Safety Report 21966580 (Version 1)
Quarter: 2023Q1

REPORT INFORMATION
  Report Type: Spontaneous
  Country: CA (occurrence: CA)
  Receive Date: 20230208
  Receipt Date: 20230208
  Transmission Date: 20230418
  Serious: Yes (Other)
  Sender: FDA-Public Use
  Company Number: None

PATIENT
  Sex: Female

DRUGS (1)
  1. METHOTREXATE [Suspect]
     Active Substance: METHOTREXATE
     Indication: Product used for unknown indication
     Dosage: 1 EVERY 1 WEEKS
     Route: 058

REACTIONS (6)
  - Crohn^s disease [Unknown]
  - Cushingoid [Unknown]
  - Diabetes mellitus [Unknown]
  - Drug ineffective [Unknown]
  - Infection [Unknown]
  - Weight increased [Unknown]
